FAERS Safety Report 5487479-1 (Version None)
Quarter: 2007Q4

REPORT INFORMATION
  Report Type: 
  Country: None (occurrence: None)
  Receive Date: 20071016
  Receipt Date: 20071004
  Transmission Date: 20080405
  Serious: Yes (Other)
  Sender: FDA-Public Use
  Company Number: US-PFIZER INC-2007083049

PATIENT

DRUGS (1)
  1. LYRICA [Suspect]
     Indication: PARAESTHESIA

REACTIONS (1)
  - CONVULSION [None]
